FAERS Safety Report 18552195 (Version 5)
Quarter: 2020Q4

REPORT INFORMATION
  Report Type: Spontaneous
  Country: JP (occurrence: JP)
  Receive Date: 20201126
  Receipt Date: 20201228
  Transmission Date: 20210114
  Serious: Yes (Other)
  Sender: FDA-Public Use
  Company Number: JP-BEH-2020125477

PATIENT
  Age: 58 Year
  Sex: Male
  Weight: 103 kg

DRUGS (18)
  1. IDELVION [Suspect]
     Active Substance: COAGULATION FACTOR IX RECOMBINANT HUMAN
     Indication: FACTOR IX DEFICIENCY
     Dosage: 6000 INTERNATIONAL UNIT (65IU/KG), QW
     Route: 042
     Dates: start: 20191207
  2. MONTELUKAST [Concomitant]
     Active Substance: MONTELUKAST SODIUM
     Indication: ASTHMA
     Dosage: 10 MILLIGRAM, QD (1DAY)
     Route: 048
     Dates: start: 20200125
  3. FLUTIFORM [Concomitant]
     Active Substance: FLUTICASONE PROPIONATE\FORMOTEROL FUMARATE
     Indication: ASTHMA
     Dosage: 3 INHALATIONS, 12 HOURS
     Dates: start: 20200328
  4. FAMOTIDINE. [Concomitant]
     Active Substance: FAMOTIDINE
     Indication: PROPHYLAXIS
     Dosage: 40 MILLIGRAM (12 HOURS)
     Route: 048
     Dates: start: 20190403
  5. CELECOXIB. [Concomitant]
     Active Substance: CELECOXIB
     Indication: HAEMOPHILIC ARTHROPATHY
     Dosage: 200 MILLIGRAM (100 MG, TABLETS, 12 HOURS)
     Route: 048
     Dates: start: 20161210
  6. THEO-DUR [Concomitant]
     Active Substance: THEOPHYLLINE ANHYDROUS
     Indication: ASTHMA
     Dosage: 200 MILLIGRAM (100MG,TABLETS, 12 HOURS)
     Route: 048
     Dates: start: 20120818
  7. DERMOVATE [Concomitant]
     Active Substance: CLOBETASOL
     Indication: ECZEMA
     Dosage: AS NEEDED, OINTMENTS, AT THE TIME OF ECZEMA AGGRAVATION
     Route: 003
     Dates: start: 20170824
  8. IDELVION [Suspect]
     Active Substance: COAGULATION FACTOR IX RECOMBINANT HUMAN
     Indication: PROPHYLAXIS
  9. ALPROLIX [Concomitant]
     Active Substance: EFTRENONACOG ALFA
     Dosage: 6000 INTERNATIONAL UNIT (3000 UNITS X 2 VIALS) 3 DAYS
     Dates: start: 20171014, end: 20201130
  10. IDELVION [Suspect]
     Active Substance: COAGULATION FACTOR IX RECOMBINANT HUMAN
     Indication: PROPHYLAXIS
  11. ISODINE [Concomitant]
     Active Substance: POVIDONE-IODINE
     Indication: ULCER
  12. FEXOFENADINE HYDROCHLORIDE. [Concomitant]
     Active Substance: FEXOFENADINE HYDROCHLORIDE
     Indication: RHINITIS ALLERGIC
     Dosage: 120 MILLIGRAM (60MG,TABLETS, 12 HOURS)
     Route: 048
     Dates: start: 20160702
  13. ISODINE [Concomitant]
     Active Substance: POVIDONE-IODINE
     Indication: ULCER
  14. ALPROLIX [Concomitant]
     Active Substance: EFTRENONACOG ALFA
     Dosage: 8000 INTERNATIONAL UNIT (4000 UNITS X 2 VIALS) 1 DAY
     Dates: start: 20201024, end: 20201024
  15. IDELVION [Suspect]
     Active Substance: COAGULATION FACTOR IX RECOMBINANT HUMAN
     Indication: FACTOR IX DEFICIENCY
     Dosage: 6000 INTERNATIONAL UNIT (65IU/KG), QW
     Route: 042
     Dates: start: 20191207
  16. MEPILEX AG [Concomitant]
     Active Substance: ACTIVATED CHARCOAL\SILVER SULFATE
     Indication: PROPHYLAXIS
     Dosage: 1 SHEET, EXTRENAL PREPARATION (UNDEFINED FORM), 1 DAY
     Route: 003
     Dates: start: 20161210
  17. TARIVID [OFLOXACIN] [Concomitant]
     Active Substance: OFLOXACIN
     Dosage: ORAL PREPARATION, UNDEFINED FORM
     Route: 048
     Dates: start: 202011
  18. BENEFIX [Concomitant]
     Active Substance: COAGULATION FACTOR IX RECOMBINANT HUMAN\ISOPROPYL ALCOHOL
     Dosage: 3000 IU, 4000 IU 1 WEEK, 4000 IU TWICE A WEEK, 6000 IU 2 DAYS
     Dates: start: 20100814

REACTIONS (9)
  - Nephrotic syndrome [Recovering/Resolving]
  - Oedema [Recovering/Resolving]
  - Ascites [Recovering/Resolving]
  - Hypoalbuminaemia [Recovering/Resolving]
  - Mass [Unknown]
  - Hypoproteinaemia [Recovering/Resolving]
  - Weight increased [Unknown]
  - Proteinuria [Recovering/Resolving]
  - Skin ulcer [Unknown]

NARRATIVE: CASE EVENT DATE: 20201101
